FAERS Safety Report 6368814-9 (Version None)
Quarter: 2009Q3

REPORT INFORMATION
  Report Type: 
  Country: None (occurrence: None)
  Receive Date: 20090918
  Receipt Date: 20090918
  Transmission Date: 20100115
  Serious: Yes (Disabling)
  Sender: FDA-Public Use
  Company Number: None

PATIENT
  Sex: Female
  Weight: 93.441 kg

DRUGS (2)
  1. ZICAM GEL SWABS 1 TUBE EVERY 4 HR FOR 48 HRS ZICAM LLC [Suspect]
     Indication: NASOPHARYNGITIS
     Dosage: 1 SWAB AS NEEDED NASAL SWAB
     Route: 045
  2. ZICAM NASAL GEL 15ML ZICAM LLC [Suspect]
     Indication: NASOPHARYNGITIS
     Dosage: SPRAY AS NEEDED IN NOSE, NASAL GEL
     Route: 045

REACTIONS (2)
  - AGEUSIA [None]
  - ANOSMIA [None]
